FAERS Safety Report 6913671-2 (Version None)
Quarter: 2010Q3

REPORT INFORMATION
  Report Type: 
  Country: None (occurrence: None)
  Receive Date: 20100806
  Receipt Date: 20100806
  Transmission Date: 20110219
  Serious: No
  Sender: FDA-Public Use
  Company Number: None

PATIENT
  Sex: Female

DRUGS (1)
  1. PAROXETINE HCL EXTENDED RELEASE [Suspect]
     Indication: DEPRESSION
     Dosage: 25 MG DAILY PO
     Route: 048

REACTIONS (1)
  - FATIGUE [None]
